FAERS Safety Report 14277501 (Version 1)
Quarter: 2017Q4

REPORT INFORMATION
  Report Type: Spontaneous
  Country: GB (occurrence: GB)
  Receive Date: 20171212
  Receipt Date: 20171212
  Transmission Date: 20180321
  Serious: Yes (Disabling, Other)
  Sender: FDA-Public Use
  Company Number: GB-JNJFOC-20171203751

PATIENT
  Age: 52 Year
  Sex: Female
  Weight: 105 kg

DRUGS (2)
  1. NORETHISTERONE [Suspect]
     Active Substance: NORETHINDRONE
     Indication: MENSTRUAL CYCLE MANAGEMENT
     Route: 048
     Dates: start: 20171103, end: 20171107
  2. CITALOPRAM [Concomitant]
     Active Substance: CITALOPRAM HYDROBROMIDE
     Route: 065
     Dates: end: 201710

REACTIONS (2)
  - Thrombosis [Recovering/Resolving]
  - Dysmenorrhoea [Recovering/Resolving]

NARRATIVE: CASE EVENT DATE: 20171111
